FAERS Safety Report 13204771 (Version 1)
Quarter: 2017Q1

REPORT INFORMATION
  Report Type: Spontaneous
  Country: US (occurrence: US)
  Receive Date: 20170208
  Receipt Date: 20170208
  Transmission Date: 20170428
  Serious: No
  Sender: FDA-Public Use
  Company Number: US-AMGEN-USASP2016111614

PATIENT
  Age: 66 Year
  Sex: Female

DRUGS (4)
  1. 5-FU [Concomitant]
     Active Substance: FLUOROURACIL
     Indication: COLORECTAL CANCER STAGE IV
     Dosage: UNK, Q2WK ON MONDAY AND WENESDAY, RUNS FOR RUNS ABOUT 3 AND A HALF HOURS
  2. AVASTIN [Concomitant]
     Active Substance: BEVACIZUMAB
     Indication: COLORECTAL CANCER STAGE IV
     Dosage: UNK UNK, Q2WK, INFUSES FOR APPROXIMATELY 46 HOURS
  3. OXALIPLATIN. [Concomitant]
     Active Substance: OXALIPLATIN
     Indication: COLORECTAL CANCER STAGE IV
     Dosage: UNK
  4. NEULASTA [Suspect]
     Active Substance: PEGFILGRASTIM
     Indication: NEUTROPENIA
     Dosage: UNK UNK, Q2WK
     Route: 065
     Dates: start: 2016

REACTIONS (16)
  - Decreased appetite [Unknown]
  - Myalgia [Unknown]
  - Headache [Unknown]
  - Dysgeusia [Unknown]
  - Impaired quality of life [Unknown]
  - Dizziness [Unknown]
  - Vision blurred [Unknown]
  - Off label use [Unknown]
  - Sinus congestion [Unknown]
  - Insomnia [Unknown]
  - Secretion discharge [Unknown]
  - Bone pain [Unknown]
  - Oropharyngeal pain [Unknown]
  - Diarrhoea [Unknown]
  - Abdominal pain upper [Unknown]
  - Feeling abnormal [Unknown]

NARRATIVE: CASE EVENT DATE: 2016
